FAERS Safety Report 19841291 (Version 1)
Quarter: 2021Q3

REPORT INFORMATION
  Report Type: Report from Study
  Country: US (occurrence: US)
  Receive Date: 20210916
  Receipt Date: 20210916
  Transmission Date: 20211014
  Serious: No
  Sender: FDA-Public Use
  Company Number: US-BIOVITRUM-2020US4135

PATIENT
  Age: 56 Year
  Sex: Male

DRUGS (3)
  1. KINERET [Suspect]
     Active Substance: ANAKINRA
     Route: 058
     Dates: start: 20190403
  2. KINERET [Suspect]
     Active Substance: ANAKINRA
     Route: 058
     Dates: start: 20190408
  3. KINERET [Suspect]
     Active Substance: ANAKINRA
     Indication: MONOCLONAL GAMMOPATHY
     Route: 058
     Dates: start: 20190502

REACTIONS (26)
  - Contusion [Unknown]
  - Influenza like illness [Unknown]
  - Monoclonal gammopathy [Unknown]
  - Fatigue [Unknown]
  - Gastrointestinal disorder [Unknown]
  - Haematuria [Unknown]
  - Headache [Unknown]
  - Abdominal distension [Unknown]
  - Blood triglycerides increased [Unknown]
  - Pyrexia [Unknown]
  - Sleep disorder [Unknown]
  - Scab [Unknown]
  - Infection [Unknown]
  - Off label use [Not Recovered/Not Resolved]
  - Gastrointestinal pain [Unknown]
  - Malaise [Unknown]
  - Hyperkeratosis [Unknown]
  - Pain [Unknown]
  - Unevaluable event [Unknown]
  - Sinus disorder [Unknown]
  - Gastritis [Unknown]
  - Condition aggravated [Unknown]
  - Injection site reaction [Unknown]
  - Anosmia [Unknown]
  - Central obesity [Unknown]
  - Irritability [Unknown]

NARRATIVE: CASE EVENT DATE: 20190403
